FAERS Safety Report 5141547-2 (Version None)
Quarter: 2006Q4

REPORT INFORMATION
  Report Type: 
  Country: None (occurrence: None)
  Receive Date: 20061026
  Receipt Date: 20061016
  Transmission Date: 20070319
  Serious: Yes (Hospitalization, Other)
  Sender: FDA-Public Use
  Company Number: 2006127342

PATIENT
  Age: 66 Year
  Sex: Female
  Weight: 67.586 kg

DRUGS (4)
  1. LYRICA [Suspect]
     Indication: BACK PAIN
     Dosage: 75 MG (75 MG, 1 IN 1 D)
     Dates: start: 20060101
  2. METHADONE HCL [Concomitant]
  3. DILAUDID [Concomitant]
  4. AMBIEN [Concomitant]

REACTIONS (3)
  - CARDIAC FAILURE [None]
  - CARDIOMYOPATHY [None]
  - FATIGUE [None]
